FAERS Safety Report 19074634 (Version 1)
Quarter: 2021Q1

REPORT INFORMATION
  Report Type: Report from Study
  Country: CA (occurrence: CA)
  Receive Date: 20210330
  Receipt Date: 20210330
  Transmission Date: 20210420
  Serious: Yes (Hospitalization, Other)
  Sender: FDA-Public Use
  Company Number: CA-TEVA-2021-CA-1895896

PATIENT
  Age: 78 Year
  Sex: Male

DRUGS (8)
  1. SULFAMETHOXAZOLE [Concomitant]
     Active Substance: SULFAMETHOXAZOLE
     Indication: INFECTION PROPHYLAXIS
     Dosage: ONGOING
     Dates: start: 20150911
  2. BENDAMUSTINE [Suspect]
     Active Substance: BENDAMUSTINE
     Indication: CHRONIC LYMPHOCYTIC LEUKAEMIA
     Dosage: 70 MG/M2 DAILY; 1?4 DAYS
     Route: 042
     Dates: start: 20150914, end: 20151110
  3. BENDAMUSTINE [Suspect]
     Active Substance: BENDAMUSTINE
     Dosage: 50 MG/M2 DAILY; 4?6 DAYS
     Route: 042
     Dates: start: 20151230, end: 20160223
  4. RITUXIMAB. [Suspect]
     Active Substance: RITUXIMAB
     Dosage: 500 MG/M2 DAILY;
     Route: 042
     Dates: start: 20151013, end: 20160222
  5. VALACYCLOVIR [Concomitant]
     Active Substance: VALACYCLOVIR HYDROCHLORIDE
     Indication: ANTIVIRAL PROPHYLAXIS
     Dosage: ONGOING
     Dates: start: 20150911
  6. GLUCOSAMINE [Concomitant]
     Active Substance: GLUCOSAMINE
     Dosage: ONGOING
  7. RITUXIMAB. [Suspect]
     Active Substance: RITUXIMAB
     Dosage: 375 MG/M2 DAILY; DAY1
     Route: 042
     Dates: start: 20150914, end: 20150914
  8. ALLOPURINOL. [Concomitant]
     Active Substance: ALLOPURINOL
     Indication: PROPHYLAXIS
     Dosage: ONGOING
     Dates: start: 20150911

REACTIONS (3)
  - Sebaceous carcinoma [Recovered/Resolved]
  - Squamous cell carcinoma [Unknown]
  - Squamous cell carcinoma of skin [Recovering/Resolving]

NARRATIVE: CASE EVENT DATE: 20200714
